FAERS Safety Report 10978077 (Version 1)
Quarter: 2015Q1

REPORT INFORMATION
  Report Type: Spontaneous
  Country: GB (occurrence: None)
  Receive Date: 20150331
  Receipt Date: 20150331
  Transmission Date: 20150721
  Serious: Yes (Other)
  Sender: FDA-Public Use
  Company Number: 2015HINLIT0271

PATIENT
  Age: 48 Year
  Sex: Male

DRUGS (7)
  1. EMTRICITABINE (EMTRICITABINE) UNKNOWN [Suspect]
     Active Substance: EMTRICITABINE
     Indication: ANTIRETROVIRAL THERAPY
  2. VINBLASTINE (VINBLASTINE) [Concomitant]
  3. NEVIRAPINE. [Suspect]
     Active Substance: NEVIRAPINE
     Indication: ANTIRETROVIRAL THERAPY
  4. TENOFOVIR (TENOFOVIR) UNKNOWN [Suspect]
     Active Substance: TENOFOVIR
     Indication: ANTIRETROVIRAL THERAPY
  5. DOXORUBICIN (DOXORUBICIN) [Concomitant]
     Active Substance: DOXORUBICIN
  6. BLEOMYCIN [Concomitant]
     Active Substance: BLEOMYCIN SULFATE
  7. DACARBAZINE (DACARBAZINE) [Concomitant]
     Active Substance: DACARBAZINE

REACTIONS (6)
  - Weight decreased [None]
  - Chest pain [None]
  - Vocal cord paralysis [None]
  - Hodgkin^s disease [None]
  - Drug interaction [None]
  - Dysphonia [None]

NARRATIVE: CASE EVENT DATE: 201205
